FAERS Safety Report 6860113-1 (Version None)
Quarter: 2010Q3

REPORT INFORMATION
  Report Type: 
  Country: None (occurrence: None)
  Receive Date: 20100720
  Receipt Date: 20100715
  Transmission Date: 20110219
  Serious: Yes (Death, Hospitalization, Other)
  Sender: FDA-Public Use
  Company Number: CA-SANOFI-AVENTIS-200920219GDDC

PATIENT
  Age: 63 Year
  Sex: Female
  Weight: 73.8 kg

DRUGS (9)
  1. DOCETAXEL [Suspect]
     Route: 042
     Dates: start: 20090806, end: 20090806
  2. BLINDED THERAPY [Suspect]
     Route: 042
     Dates: start: 20090806, end: 20090806
  3. CLODRONATE DISODIUM [Concomitant]
     Route: 048
     Dates: start: 20080214
  4. SIMVASTATIN [Concomitant]
     Route: 048
     Dates: start: 20080101
  5. PREVACID [Concomitant]
     Route: 048
     Dates: start: 20080916
  6. VITAMIN D [Concomitant]
     Indication: VITAMIN SUPPLEMENTATION
     Route: 048
     Dates: start: 20080101
  7. IBUPROFEN [Concomitant]
     Dosage: DOSE AS USED: 200-400 MG
     Route: 048
     Dates: start: 20080724
  8. ZOPICLONE [Concomitant]
     Indication: INSOMNIA
     Dates: start: 20080701
  9. MULTI-VITAMINS [Concomitant]
     Indication: VITAMIN SUPPLEMENTATION
     Route: 048
     Dates: start: 20080101

REACTIONS (4)
  - COLITIS ISCHAEMIC [None]
  - FEBRILE NEUTROPENIA [None]
  - HYPOTENSION [None]
  - RENAL FAILURE ACUTE [None]
